FAERS Safety Report 9624198 (Version 2)
Quarter: 2013Q4

REPORT INFORMATION
  Report Type: Other
  Country: JP (occurrence: JP)
  Receive Date: 20131015
  Receipt Date: 20131105
  Transmission Date: 20140711
  Serious: Yes (Disabling)
  Sender: FDA-Public Use
  Company Number: JP-PURDUE-GBR-2013-0016058

PATIENT
  Age: 53 Year
  Sex: Female

DRUGS (11)
  1. OXYCODONE HCL PR TABLET 80 MG [Suspect]
     Indication: CANCER PAIN
     Dosage: 40 MG, BID
     Route: 048
     Dates: start: 20120312, end: 20120524
  2. NOVAMIN /00013301/ [Suspect]
     Indication: PROPHYLAXIS OF NAUSEA AND VOMITING
     Dosage: 15 MG, DAILY
     Route: 048
     Dates: start: 20120312, end: 20120604
  3. MORPHINE [Concomitant]
     Indication: CANCER PAIN
     Dosage: 0.15 ML/HR, UNK
     Route: 058
     Dates: start: 20120529
  4. CYMBALTA [Concomitant]
     Indication: ADJUSTMENT DISORDER
     Dosage: 60 MG, DAILY
     Route: 048
     Dates: start: 20120629, end: 20120807
  5. CYMBALTA [Concomitant]
     Dosage: 20 MG, DAILY
     Route: 048
     Dates: start: 20120614
  6. AKINETON                           /00079501/ [Concomitant]
     Indication: TREMOR
     Dosage: 5 MG, DAILY
     Route: 030
     Dates: start: 20120605, end: 20120605
  7. AKINETON                           /00079501/ [Concomitant]
     Indication: MUSCULOSKELETAL STIFFNESS
     Dosage: 2 MG, DAILY
     Route: 048
     Dates: start: 20120606, end: 20120608
  8. DULOXETINE HYDROCHLORIDE [Concomitant]
     Indication: ADJUSTMENT DISORDER
     Dosage: 60 MG, UNK
     Dates: start: 20120629, end: 20130807
  9. DULOXETINE HYDROCHLORIDE [Concomitant]
     Dosage: 20 MG, DAILY
     Route: 048
     Dates: start: 20120614
  10. ARIMIDEX [Concomitant]
     Indication: BREAST CANCER
     Dosage: 1 MG, DAILY
     Route: 048
     Dates: start: 20120312, end: 20120718
  11. DUROTEP [Concomitant]
     Indication: CANCER PAIN
     Dosage: UNK
     Dates: start: 20120524, end: 20120529

REACTIONS (5)
  - Musculoskeletal stiffness [Recovered/Resolved]
  - Masked facies [Unknown]
  - Somnolence [Recovered/Resolved]
  - Tremor [Recovered/Resolved]
  - Off label use [Unknown]
